FAERS Safety Report 5420357-2 (Version None)
Quarter: 2007Q3

REPORT INFORMATION
  Report Type: 
  Country: None (occurrence: None)
  Receive Date: 20070816
  Receipt Date: 20070809
  Transmission Date: 20080115
  Serious: Yes (Death)
  Sender: FDA-Public Use
  Company Number: 163-21880-07071095

PATIENT
  Age: 67 Year
  Sex: Male

DRUGS (2)
  1. REVLIMID [Suspect]
     Indication: AMYLOIDOSIS
     Dosage: 15 MG, DAILY 3 WEEKS ON 1 WEEK OFF, ORAL
     Route: 048
     Dates: start: 20070228, end: 20070401
  2. REVLIMID [Suspect]
     Indication: AMYLOIDOSIS
     Dosage: 15 MG, DAILY 3 WEEKS ON 1 WEEK OFF, ORAL
     Route: 048
     Dates: start: 20070711, end: 20070701

REACTIONS (1)
  - CEREBRAL HAEMORRHAGE [None]
